FAERS Safety Report 25177544 (Version 2)
Quarter: 2025Q2

REPORT INFORMATION
  Report Type: Spontaneous
  Country: TW (occurrence: TW)
  Receive Date: 20250409
  Receipt Date: 20250418
  Transmission Date: 20250716
  Serious: Yes (Death)
  Sender: ROCHE
  Company Number: TW-CHUGAI-2025010926

PATIENT
  Age: 25 Year
  Sex: Male
  Weight: 33 kg

DRUGS (1)
  1. HEMLIBRA [Suspect]
     Active Substance: EMICIZUMAB-KXWH
     Indication: Factor VIII deficiency
     Dosage: 90 MILLIGRAM, ONCE/2WEEKS
     Route: 058
     Dates: start: 20250123

REACTIONS (2)
  - Pyrexia [Fatal]
  - Pneumonia [Fatal]

NARRATIVE: CASE EVENT DATE: 20250327
